FAERS Safety Report 5453103-7 (Version None)
Quarter: 2007Q3

REPORT INFORMATION
  Report Type: 
  Country: None (occurrence: None)
  Receive Date: 20070914
  Receipt Date: 20070904
  Transmission Date: 20080115
  Serious: Yes (Other)
  Sender: FDA-Public Use
  Company Number: PL-PFIZER INC-2007070604

PATIENT
  Sex: Male

DRUGS (9)
  1. XALATAN [Suspect]
     Dates: start: 20070721, end: 20070825
  2. AMIZEPIN [Concomitant]
  3. PROPRANOLOL [Concomitant]
  4. CLONAZEPAM [Concomitant]
  5. IMIPRAMINE [Concomitant]
     Dates: start: 20010101, end: 20070401
  6. ASCORBIC ACID [Concomitant]
  7. VITAMIN B COMPLEX CAP [Concomitant]
  8. LECITHIN [Concomitant]
  9. ALL OTHER NON-THERAPEUTIC PRODUCTS [Concomitant]

REACTIONS (3)
  - GLAUCOMA [None]
  - INTRAOCULAR PRESSURE TEST [None]
  - VITREOUS FLOATERS [None]
